FAERS Safety Report 7745819-4 (Version None)
Quarter: 2011Q3

REPORT INFORMATION
  Report Type: 
  Country: None (occurrence: None)
  Receive Date: 20110825
  Receipt Date: 20110721
  Transmission Date: 20111222
  Serious: No
  Sender: FDA-Public Use
  Company Number: 332292

PATIENT
  Age: 61 Year
  Sex: Female
  Weight: 116.1 kg

DRUGS (1)
  1. VICTOZA [Suspect]
     Indication: TYPE 2 DIABETES MELLITUS
     Dosage: 0.6 MG, QD, SUBCUTANEOUS
     Route: 058

REACTIONS (4)
  - WEIGHT INCREASED [None]
  - MALAISE [None]
  - WEIGHT DECREASED [None]
  - ASTHENIA [None]
